FAERS Safety Report 10420614 (Version 1)
Quarter: 2014Q3

REPORT INFORMATION
  Report Type: Spontaneous
  Country: US (occurrence: None)
  Receive Date: 20140714
  Receipt Date: 20140714
  Transmission Date: 20150326
  Serious: No
  Sender: FDA-Public Use
  Company Number: 2014US003347

PATIENT
  Age: 51 Year
  Sex: Male

DRUGS (1)
  1. ICLUSIG [Suspect]
     Active Substance: PONATINIB
     Indication: CHRONIC MYELOID LEUKAEMIA
     Route: 048
     Dates: start: 201405

REACTIONS (5)
  - Pyrexia [None]
  - Chest discomfort [None]
  - Chills [None]
  - Migraine [None]
  - Discomfort [None]

NARRATIVE: CASE EVENT DATE: 20140517
